FAERS Safety Report 4623082-0 (Version None)
Quarter: 2005Q1

REPORT INFORMATION
  Report Type: 
  Country: None (occurrence: None)
  Receive Date: 20050328
  Receipt Date: 20050328
  Transmission Date: 20050727
  Serious: No
  Sender: FDA-Public Use
  Company Number: None

PATIENT
  Age: 69 Year
  Sex: Male

DRUGS (1)
  1. IMIPENEM/CILASTATIN [Suspect]
     Indication: PANCREATITIS
     Dosage: 500 MG IV Q8H
     Route: 042
     Dates: start: 20050116, end: 20050118

REACTIONS (2)
  - RASH ERYTHEMATOUS [None]
  - RASH PRURITIC [None]
